FAERS Safety Report 5417211-9 (Version None)
Quarter: 2007Q3

REPORT INFORMATION
  Report Type: 
  Country: None (occurrence: None)
  Receive Date: 20070816
  Receipt Date: 20070807
  Transmission Date: 20080115
  Serious: Yes (Other)
  Sender: FDA-Public Use
  Company Number: US-JNJFOC-20070301088

PATIENT
  Sex: Female
  Weight: 85.96 kg

DRUGS (5)
  1. REMICADE [Suspect]
     Indication: RHEUMATOID ARTHRITIS
     Route: 042
  2. SYNTHROID [Concomitant]
     Indication: HYPOTHYROIDISM
     Dosage: 0.88 MCG
  3. DAYPRO [Concomitant]
     Indication: RHEUMATOID ARTHRITIS
  4. ARAVA [Concomitant]
     Indication: RHEUMATOID ARTHRITIS
  5. PREDNISONE TAB [Concomitant]
     Indication: RHEUMATOID ARTHRITIS

REACTIONS (2)
  - FEMUR FRACTURE [None]
  - MENISCUS LESION [None]
